FAERS Safety Report 9002046 (Version 1)
Quarter: 2013Q1

REPORT INFORMATION
  Report Type: Other
  Country: GB (occurrence: GB)
  Receive Date: 20130108
  Receipt Date: 20130108
  Transmission Date: 20140127
  Serious: Yes (Other)
  Sender: FDA-Public Use
  Company Number: GB-DENTSPLY-2012SCDP003033

PATIENT
  Age: 53 Year
  Sex: Male

DRUGS (3)
  1. LIGNOCAINE WITH ADRENALINE [Suspect]
     Indication: DENTAL CARIES
     Dosage: 4.4 ML, UNK
     Route: 004
  2. SEPTANEST [Suspect]
     Indication: DENTAL CARIES
     Dosage: 4.4 ML, UNK
     Route: 004
  3. ALCOHOL [Concomitant]
     Indication: PRODUCT USED FOR UNKNOWN INDICATION
     Dosage: UNK

REACTIONS (4)
  - Psychotic disorder [None]
  - Hallucination [None]
  - Paranoia [None]
  - Blood pressure increased [Unknown]
